FAERS Safety Report 8432032-0 (Version None)
Quarter: 2012Q2

REPORT INFORMATION
  Report Type: 
  Country: None (occurrence: None)
  Receive Date: 20120606
  Receipt Date: 20120525
  Transmission Date: 20120825
  Serious: Yes (Life-Threatening, Hospitalization, Disabling, Other)
  Sender: FDA-Public Use
  Company Number: AUR-APL-2010-00088

PATIENT
  Age: 44 Year
  Sex: Female

DRUGS (3)
  1. MIRTAZAPINE [Suspect]
     Indication: DEPRESSION
     Dosage: 180 MG (45 MG, 4 IN 1 D), ORAL
     Route: 048
     Dates: start: 20080123, end: 20080212
  2. MIRTAZAPINE [Suspect]
     Indication: PSYCHOMOTOR RETARDATION
     Dosage: 180 MG (45 MG, 4 IN 1 D), ORAL
     Route: 048
     Dates: start: 20080123, end: 20080212
  3. RISPERIDONE [Suspect]
     Indication: BIPOLAR DISORDER
     Dosage: (62.5 MG, 1 WK), INTRAMUSCULAR
     Route: 030
     Dates: start: 20071102, end: 20080124

REACTIONS (14)
  - MUSCLE RIGIDITY [None]
  - DRUG INTOLERANCE [None]
  - NEUROLEPTIC MALIGNANT SYNDROME [None]
  - SEROTONIN SYNDROME [None]
  - BEDRIDDEN [None]
  - LABILE BLOOD PRESSURE [None]
  - HYPERTHERMIA [None]
  - LOSS OF CONSCIOUSNESS [None]
  - HYPERTONIA [None]
  - PSYCHOMOTOR RETARDATION [None]
  - HYPERHIDROSIS [None]
  - MOBILITY DECREASED [None]
  - NUCHAL RIGIDITY [None]
  - CONFUSIONAL STATE [None]
